FAERS Safety Report 12620767 (Version 1)
Quarter: 2016Q3

REPORT INFORMATION
  Report Type: Spontaneous
  Country: US (occurrence: US)
  Receive Date: 20160804
  Receipt Date: 20160804
  Transmission Date: 20161109
  Serious: No
  Sender: FDA-Public Use
  Company Number: US-BEH-2016071487

PATIENT
  Age: 27 Year
  Sex: Male
  Weight: 99.77 kg

DRUGS (1)
  1. HIZENTRA [Suspect]
     Active Substance: HUMAN IMMUNOGLOBULIN G
     Indication: HYPOGAMMAGLOBULINAEMIA
     Dosage: 27 G, QW
     Route: 058
     Dates: start: 20150116

REACTIONS (1)
  - Urinary tract infection [Unknown]
